FAERS Safety Report 9519931 (Version 3)
Quarter: 2013Q4

REPORT INFORMATION
  Report Type: Spontaneous
  Country: DE (occurrence: DE)
  Receive Date: 20130912
  Receipt Date: 20131023
  Transmission Date: 20140711
  Serious: Yes (Hospitalization)
  Sender: FDA-Public Use
  Company Number: DE-AMGEN-DEUCT2013064398

PATIENT
  Age: 25 Year
  Sex: Male

DRUGS (8)
  1. FILGRASTIM [Suspect]
     Indication: PRODUCT USED FOR UNKNOWN INDICATION
     Dosage: UNK, DAY 4-8
     Route: 058
     Dates: start: 20130831, end: 20130904
  2. ADRIAMYCIN [Concomitant]
     Indication: HODGKIN^S DISEASE
     Dosage: 35 MG/M2, UNK
     Dates: start: 20130828
  3. BLEOMYCIN [Concomitant]
     Indication: HODGKIN^S DISEASE
     Dosage: 10 MG/M2, UNK
     Dates: start: 20130828
  4. PROCARBAZINE [Concomitant]
     Indication: HODGKIN^S DISEASE
     Dosage: 100 MG/M2, UNK
     Dates: start: 20130828
  5. VINCRISTIN [Concomitant]
     Indication: HODGKIN^S DISEASE
     Dosage: 14 MG/M2, UNK
     Dates: start: 20130828
  6. ETOPOSIDE [Concomitant]
     Indication: HODGKIN^S DISEASE
     Dosage: 200 MG/M2, UNK
     Dates: start: 20130828
  7. CYCLOPHOSPHAMID [Concomitant]
     Indication: HODGKIN^S DISEASE
     Dosage: 1250 MG/M2, UNK
     Dates: start: 20130828
  8. PREDNISON [Concomitant]
     Indication: HODGKIN^S DISEASE
     Dosage: 40 MG/M2, UNK
     Dates: start: 20130828

REACTIONS (3)
  - Back pain [Recovered/Resolved]
  - Arthralgia [Recovered/Resolved]
  - Bone pain [Recovered/Resolved]
